FAERS Safety Report 5345765-X (Version None)
Quarter: 2007Q2

REPORT INFORMATION
  Report Type: 
  Country: None (occurrence: None)
  Receive Date: 20070605
  Receipt Date: 20070524
  Transmission Date: 20071010
  Serious: Yes (Hospitalization)
  Sender: FDA-Public Use
  Company Number: HQWYE337624MAY07

PATIENT
  Age: 83 Year
  Sex: Male

DRUGS (7)
  1. AMIODAR [Suspect]
     Indication: ATRIAL FIBRILLATION
     Route: 042
     Dates: start: 20070501, end: 20070502
  2. THEOPHYLLINE [Concomitant]
  3. BENSERAZIDE HYDROCHLORIDE/LEVODOPA [Concomitant]
  4. CEFOTAXIME [Concomitant]
  5. REPAGLINIDE [Concomitant]
     Indication: DIABETES MELLITUS
  6. FUROSEMIDE [Concomitant]
  7. ALLOPURINOL [Concomitant]

REACTIONS (1)
  - HEPATOTOXICITY [None]
